FAERS Safety Report 22190378 (Version 1)
Quarter: 2023Q2

REPORT INFORMATION
  Report Type: Other
  Country: RU (occurrence: None)
  Receive Date: 20230410
  Receipt Date: 20230410
  Transmission Date: 20230721
  Serious: Yes (Other)
  Sender: FDA-Public Use
  Company Number: RU-ROCHE-3325545

PATIENT
  Age: 8 Year
  Sex: Female

DRUGS (6)
  1. BEVACIZUMAB [Suspect]
     Active Substance: BEVACIZUMAB
     Indication: Metastases to lung
     Route: 042
  2. VINCRISTINE [Concomitant]
     Active Substance: VINCRISTINE
     Indication: Metastases to lung
  3. IRINOTECAN [Concomitant]
     Active Substance: IRINOTECAN
     Indication: Metastases to lung
  4. TEMOZOLOMIDE [Concomitant]
     Active Substance: TEMOZOLOMIDE
     Indication: Metastases to lung
  5. SOLU-MEDROL [Concomitant]
     Active Substance: METHYLPREDNISOLONE SODIUM SUCCINATE
  6. PREDNISONE [Concomitant]
     Active Substance: PREDNISONE

REACTIONS (2)
  - Thrombotic microangiopathy [Unknown]
  - Acute kidney injury [Unknown]
